FAERS Safety Report 19188377 (Version 1)
Quarter: 2021Q2

REPORT INFORMATION
  Report Type: Spontaneous
  Country: NL (occurrence: NL)
  Receive Date: 20210428
  Receipt Date: 20210428
  Transmission Date: 20210717
  Serious: Yes (Death, Other)
  Sender: FDA-Public Use
  Company Number: NVSC2021NL095091

PATIENT
  Age: 79 Year
  Sex: Male

DRUGS (3)
  1. LEUPRORELIN [Suspect]
     Active Substance: LEUPROLIDE ACETATE
     Dosage: 45 MG, (EVERY 6 MONTHS)
     Route: 058
     Dates: start: 20201229
  2. LEUPRORELIN [Suspect]
     Active Substance: LEUPROLIDE ACETATE
     Dosage: 45 MG, (EVERY 6 MONTHS)
     Route: 058
     Dates: start: 20200707
  3. LEUPRORELIN [Suspect]
     Active Substance: LEUPROLIDE ACETATE
     Indication: PROSTATE CANCER
     Dosage: 45 MG, (EVERY 6 MONTHS)
     Route: 058
     Dates: start: 20160129

REACTIONS (1)
  - Terminal state [Fatal]
